FAERS Safety Report 4749505-4 (Version None)
Quarter: 2005Q3

REPORT INFORMATION
  Report Type: 
  Country: None (occurrence: None)
  Receive Date: 20050819
  Receipt Date: 20050805
  Transmission Date: 20060218
  Serious: Yes (Hospitalization)
  Sender: FDA-Public Use
  Company Number: 2005S1007357

PATIENT
  Age: 93 Year
  Sex: Female

DRUGS (5)
  1. AGGRENOX [Suspect]
     Indication: HYPOTENSION
  2. MICARDIS [Suspect]
     Dosage: PO
     Route: 048
  3. CLOPIDOGREL BISULFATE [Suspect]
     Indication: HYPOTENSION
     Dosage: PO
     Route: 048
  4. ATENOLOL [Suspect]
     Indication: CARDIAC FAILURE CONGESTIVE
     Dosage: 25 MG; QD; PO
     Route: 048
  5. LASIX [Suspect]
     Dosage: 40 MG; QD; PO
     Route: 048

REACTIONS (3)
  - DIZZINESS [None]
  - FALL [None]
  - HYPOTENSION [None]
